FAERS Safety Report 4730973-9 (Version None)
Quarter: 2005Q3

REPORT INFORMATION
  Report Type: 
  Country: None (occurrence: None)
  Receive Date: 20050726
  Receipt Date: 20041011
  Transmission Date: 20060218
  Serious: Yes (Other)
  Sender: FDA-Public Use
  Company Number: 04GER0237

PATIENT
  Age: 68 Year
  Sex: Female

DRUGS (10)
  1. AGGRASTAT [Suspect]
     Indication: MYOCARDIAL INFARCTION
     Dosage: 250 ML QD
     Dates: start: 20040404, end: 20040407
  2. AGGRASTAT [Suspect]
     Indication: MYOCARDIAL INFARCTION
     Dosage: 50 ML, IV
     Route: 042
     Dates: start: 20040412, end: 20040412
  3. HEPARIN [Suspect]
     Indication: MYOCARDIAL INFARCTION
     Dosage: 25000 IU/DAY, IV
     Route: 042
     Dates: start: 20040404, end: 20040412
  4. ASPIRIN [Concomitant]
  5. ATENOLOL [Concomitant]
  6. CLOPIDOGREL BISULFATE [Concomitant]
  7. METOPROLOL SUCCINATE [Concomitant]
  8. RAMIPRIL [Concomitant]
  9. PRAVASTATIN SODIUM [Concomitant]
  10. QUINAPRIL HCL [Concomitant]

REACTIONS (3)
  - HAEMATOCRIT DECREASED [None]
  - HAEMOGLOBIN DECREASED [None]
  - THROMBOCYTOPENIA [None]
